FAERS Safety Report 22393578 (Version 1)
Quarter: 2023Q2

REPORT INFORMATION
  Report Type: Spontaneous
  Country: US (occurrence: None)
  Receive Date: 20230531
  Receipt Date: 20230531
  Transmission Date: 20230722
  Serious: Yes (Hospitalization, Other)
  Sender: FDA-Public Use
  Company Number: None

PATIENT
  Age: 11 Year
  Sex: Male
  Weight: 29.7 kg

DRUGS (1)
  1. FLUOXETINE [Suspect]
     Active Substance: FLUOXETINE HYDROCHLORIDE
     Indication: Obsessive-compulsive disorder
     Dosage: FREQUENCY : DAILY;?
     Route: 048
     Dates: start: 20230412, end: 20230430

REACTIONS (4)
  - Therapy interrupted [None]
  - Antidepressant discontinuation syndrome [None]
  - Pain in extremity [None]
  - Purpura [None]

NARRATIVE: CASE EVENT DATE: 20230430
